FAERS Safety Report 8026981-5 (Version None)
Quarter: 2012Q1

REPORT INFORMATION
  Report Type: 
  Country: None (occurrence: None)
  Receive Date: 20120106
  Receipt Date: 20120103
  Transmission Date: 20120608
  Serious: Yes (Other)
  Sender: FDA-Public Use
  Company Number: BR-PFIZER INC-2012001783

PATIENT
  Age: 48 Year
  Sex: Male

DRUGS (2)
  1. VARENICLINE TARTRATE [Suspect]
     Dosage: TWO TABLETS DAILY
     Route: 048
  2. VARENICLINE TARTRATE [Suspect]
     Indication: SMOKING CESSATION THERAPY
     Dosage: UNK
     Route: 048
     Dates: start: 20111221

REACTIONS (4)
  - SOMNOLENCE [None]
  - FEELING DRUNK [None]
  - AGITATION [None]
  - AGEUSIA [None]
